FAERS Safety Report 8433421-0 (Version None)
Quarter: 2012Q2

REPORT INFORMATION
  Report Type: 
  Country: None (occurrence: None)
  Receive Date: 20120613
  Receipt Date: 20120609
  Transmission Date: 20120825
  Serious: Yes (Death)
  Sender: FDA-Public Use
  Company Number: IN-B.I. PHARMACEUTICALS,INC./RIDGEFIELD-2012-CS-00833IG

PATIENT
  Age: 87 Week
  Sex: Female

DRUGS (2)
  1. AGGRENOX [Suspect]
     Indication: CEREBROVASCULAR ACCIDENT
     Dosage: 25/200 MG
     Route: 048
     Dates: start: 20120509, end: 20120511
  2. UNSPECIFIED MEDICATION [Concomitant]

REACTIONS (1)
  - BRAIN OEDEMA [None]
